FAERS Safety Report 14976062 (Version 1)
Quarter: 2018Q2

REPORT INFORMATION
  Report Type: Spontaneous
  Country: US (occurrence: US)
  Receive Date: 20180605
  Receipt Date: 20180605
  Transmission Date: 20180711
  Serious: No
  Sender: FDA-Public Use
  Company Number: US-ROCHE-2070364

PATIENT
  Age: 70 Year
  Sex: Female

DRUGS (4)
  1. XELJANZ XR [Suspect]
     Active Substance: TOFACITINIB CITRATE
     Indication: PSORIASIS
  2. PROLIA [Concomitant]
     Active Substance: DENOSUMAB
     Dosage: ONGOING- ABOUT 2 YEARS
     Route: 065
  3. ACTEMRA [Suspect]
     Active Substance: TOCILIZUMAB
     Indication: PRODUCT USED FOR UNKNOWN INDICATION
     Dosage: A YEAR
     Route: 042
  4. XELJANZ XR [Suspect]
     Active Substance: TOFACITINIB CITRATE
     Indication: RHEUMATOID ARTHRITIS
     Dosage: ONGOING
     Route: 065
     Dates: start: 20171101

REACTIONS (4)
  - Body height decreased [Unknown]
  - Pain in extremity [Not Recovered/Not Resolved]
  - Drug dose omission [Unknown]
  - Psoriasis [Recovered/Resolved]

NARRATIVE: CASE EVENT DATE: 201711
